FAERS Safety Report 8337162-X (Version None)
Quarter: 2012Q2

REPORT INFORMATION
  Report Type: 
  Country: None (occurrence: None)
  Receive Date: 20120504
  Receipt Date: 20120430
  Transmission Date: 20120825
  Serious: Yes (Other)
  Sender: FDA-Public Use
  Company Number: PHHY2012CA008357

PATIENT
  Sex: Female

DRUGS (2)
  1. GILENYA [Suspect]
     Indication: RELAPSING-REMITTING MULTIPLE SCLEROSIS
     Dosage: 0.5 MG, QD
     Route: 048
     Dates: start: 20120126
  2. GILENYA [Suspect]
     Dosage: 0.5 MG, QD
     Route: 048
     Dates: start: 20120423

REACTIONS (13)
  - BLOOD PRESSURE DECREASED [None]
  - DYSGEUSIA [None]
  - PARAESTHESIA [None]
  - DIZZINESS [None]
  - PAIN [None]
  - MOBILITY DECREASED [None]
  - BALANCE DISORDER [None]
  - NASAL CONGESTION [None]
  - SOMNOLENCE [None]
  - FATIGUE [None]
  - HEADACHE [None]
  - BACK PAIN [None]
  - COUGH [None]
